FAERS Safety Report 5233366-3 (Version None)
Quarter: 2007Q1

REPORT INFORMATION
  Report Type: 
  Country: None (occurrence: None)
  Receive Date: 20070207
  Receipt Date: 20070207
  Transmission Date: 20070707
  Serious: Yes (Other)
  Sender: FDA-Public Use
  Company Number: None

PATIENT
  Age: 74 Year
  Sex: Male

DRUGS (1)
  1. BYETTA [Suspect]
     Dosage: ONE INJECTION TWICE A DAY

REACTIONS (2)
  - BLOOD GLUCOSE INCREASED [None]
  - DEVICE FAILURE [None]
